FAERS Safety Report 6640358-6 (Version None)
Quarter: 2010Q1

REPORT INFORMATION
  Report Type: 
  Country: None (occurrence: None)
  Receive Date: 20100303
  Receipt Date: 20090102
  Transmission Date: 20100710
  Serious: Yes (Life-Threatening, Other)
  Sender: FDA-Public Use
  Company Number: 282794

PATIENT
  Sex: Male

DRUGS (1)
  1. NOVOLIN R [Suspect]
     Indication: INSULIN-REQUIRING TYPE 2 DIABETES MELLITUS
     Dosage: INTRAVENOUS
     Route: 042
     Dates: start: 20080101, end: 20080101

REACTIONS (1)
  - HYPERSENSITIVITY [None]
